FAERS Safety Report 7365690-2 (Version None)
Quarter: 2011Q1

REPORT INFORMATION
  Report Type: 
  Country: None (occurrence: None)
  Receive Date: 20110316
  Receipt Date: 20110316
  Transmission Date: 20110831
  Serious: Yes (Other)
  Sender: FDA-Public Use
  Company Number: None

PATIENT
  Age: 26 Year
  Sex: Female
  Weight: 54.4316 kg

DRUGS (4)
  1. CAPZASIN HP CAPZASIN HP [Suspect]
     Indication: MUSCLE STRAIN
     Dosage: DROP SIZE OF PEA TOP
     Route: 061
     Dates: start: 20110314, end: 20110315
  2. CAPZASIN HP CAPZASIN HP [Suspect]
     Indication: MYALGIA
     Dosage: DROP SIZE OF PEA TOP
     Route: 061
     Dates: start: 20110314, end: 20110315
  3. CAPZASIN HP CAPZASIN HP [Suspect]
     Indication: MUSCLE STRAIN
     Dosage: DROP SIZE OF PEA TOP
     Route: 061
     Dates: start: 20100912, end: 20101213
  4. CAPZASIN HP CAPZASIN HP [Suspect]
     Indication: MYALGIA
     Dosage: DROP SIZE OF PEA TOP
     Route: 061
     Dates: start: 20100912, end: 20101213

REACTIONS (1)
  - APPLICATION SITE PAIN [None]
